FAERS Safety Report 10310505 (Version 2)
Quarter: 2014Q3

REPORT INFORMATION
  Report Type: Spontaneous
  Country: BE (occurrence: BE)
  Receive Date: 20140717
  Receipt Date: 20140801
  Transmission Date: 20150326
  Serious: Yes (Other)
  Sender: FDA-Public Use
  Company Number: BE-JNJFOC-20140709207

PATIENT
  Sex: Male

DRUGS (8)
  1. XARELTO [Suspect]
     Active Substance: RIVAROXABAN
     Indication: CEREBROVASCULAR ACCIDENT PROPHYLAXIS
     Route: 048
     Dates: start: 201309, end: 20140511
  2. XARELTO [Suspect]
     Active Substance: RIVAROXABAN
     Indication: ATRIAL FIBRILLATION
     Route: 048
     Dates: start: 201309, end: 20140511
  3. PROSTA URGENIN UNO [Concomitant]
     Route: 065
  4. COVERSYL [Concomitant]
     Active Substance: PERINDOPRIL
     Route: 065
  5. OMEPRAZOLE. [Concomitant]
     Active Substance: OMEPRAZOLE
     Route: 065
  6. CRESTOR [Concomitant]
     Active Substance: ROSUVASTATIN CALCIUM
     Route: 065
  7. EZETROL [Concomitant]
     Active Substance: EZETIMIBE
     Route: 065
  8. CORUNO [Concomitant]
     Active Substance: MOLSIDOMINE
     Route: 065

REACTIONS (5)
  - Aphasia [Unknown]
  - Embolic stroke [Unknown]
  - Cardiac flutter [Unknown]
  - Eye movement disorder [Unknown]
  - Hemiplegia [Unknown]
